FAERS Safety Report 4883515-1 (Version None)
Quarter: 2006Q1

REPORT INFORMATION
  Report Type: 
  Country: None (occurrence: None)
  Receive Date: 20060113
  Receipt Date: 20060104
  Transmission Date: 20060701
  Serious: Yes (Other)
  Sender: FDA-Public Use
  Company Number: 2006003953

PATIENT
  Age: 26 Year
  Sex: Female

DRUGS (1)
  1. DEPO-PROVERA SUSPENSION/INJ [Suspect]
     Indication: CONTRACEPTION
     Dosage: 150 MG (150 MG, FIRST INJECTION, EVERY 3 MONTHS), INTRAMUSCULAR
     Route: 030
     Dates: start: 20050601, end: 20050601

REACTIONS (1)
  - NODULE [None]
